FAERS Safety Report 18463614 (Version 3)
Quarter: 2020Q4

REPORT INFORMATION
  Report Type: Report from Study
  Country: MX (occurrence: MX)
  Receive Date: 20201104
  Receipt Date: 20201117
  Transmission Date: 20210114
  Serious: Yes (Hospitalization)
  Sender: FDA-Public Use
  Company Number: MX-NOVOPROD-764122

PATIENT
  Age: 70 Year
  Sex: Male
  Weight: 66 kg

DRUGS (4)
  1. SEMAGLUTIDE 14 MG [Suspect]
     Active Substance: SEMAGLUTIDE
     Indication: TYPE 2 DIABETES MELLITUS
     Dosage: 14 MG, QD
     Route: 048
     Dates: start: 20200622, end: 20201026
  2. SEMAGLUTIDE 14 MG [Suspect]
     Active Substance: SEMAGLUTIDE
     Dosage: UNK
     Dates: end: 20201026
  3. CAPTORIL [Concomitant]
     Active Substance: CAPTOPRIL
     Dosage: 25 MG EVERY 24 H
  4. SEMAGLUTIDE 14 MG [Suspect]
     Active Substance: SEMAGLUTIDE
     Dosage: UNK
     Dates: start: 20200622, end: 20200923

REACTIONS (1)
  - Gallbladder empyema [Not Recovered/Not Resolved]

NARRATIVE: CASE EVENT DATE: 20201026
